FAERS Safety Report 16668176 (Version 1)
Quarter: 2019Q3

REPORT INFORMATION
  Report Type: Spontaneous
  Country: US (occurrence: US)
  Receive Date: 20190619
  Receipt Date: 20190619
  Transmission Date: 20191004
  Serious: Yes (Hospitalization)
  Sender: FDA-Public Use
  Company Number: None

PATIENT
  Age: 42 Year
  Sex: Female
  Weight: 115 kg

DRUGS (7)
  1. VINCRISTINE SULFATE. [Suspect]
     Active Substance: VINCRISTINE SULFATE
     Dates: end: 20190527
  2. METHOTREXATE. [Suspect]
     Active Substance: METHOTREXATE
     Dates: end: 20190507
  3. CYCLOPHOSPHAMIDE. [Suspect]
     Active Substance: CYCLOPHOSPHAMIDE
     Dates: end: 20190603
  4. DAUNORUBICIN [Suspect]
     Active Substance: DAUNORUBICIN
     Dates: end: 20190527
  5. CYTARABINE. [Suspect]
     Active Substance: CYTARABINE
     Dates: end: 20190614
  6. MERCAPTOPURINE. [Suspect]
     Active Substance: MERCAPTOPURINE
     Dates: end: 20190616
  7. DEXAMETHASONE. [Suspect]
     Active Substance: DEXAMETHASONE
     Dates: end: 20190526

REACTIONS (11)
  - Pulmonary embolism [None]
  - Rhinorrhoea [None]
  - Constipation [None]
  - Swelling [None]
  - Diarrhoea [None]
  - Hypoaesthesia [None]
  - Headache [None]
  - Pain in extremity [None]
  - Asthenia [None]
  - Pyrexia [None]
  - Tachycardia [None]

NARRATIVE: CASE EVENT DATE: 20190612
